FAERS Safety Report 8536247-2 (Version None)
Quarter: 2012Q3

REPORT INFORMATION
  Report Type: 
  Country: None (occurrence: None)
  Receive Date: 20120712
  Receipt Date: 20120628
  Transmission Date: 20120928
  Serious: Yes (Hospitalization)
  Sender: FDA-Public Use
  Company Number: ES-1192977

PATIENT
  Age: 52 Year
  Sex: Female

DRUGS (1)
  1. CARTEOLOL HYDROCHLORIDE [Suspect]
     Indication: OCULAR HYPERTENSION
     Dosage: OPHTHALMIC
     Route: 047
     Dates: start: 20120101, end: 20120309

REACTIONS (2)
  - SYNCOPE [None]
  - SINUS BRADYCARDIA [None]
